FAERS Safety Report 8904442 (Version 1)
Quarter: 2012Q4

REPORT INFORMATION
  Report Type: 
  Country: US (occurrence: US)
  Receive Date: 20121112
  Receipt Date: 20121112
  Transmission Date: 20130627
  Serious: Yes (Hospitalization)
  Sender: FDA-Public Use
  Company Number: US-B.I. PHARMACEUTICALS,INC./RIDGEFIELD-2012-BP-27478BP

PATIENT
  Sex: Male

DRUGS (5)
  1. SPIRIVA [Suspect]
     Indication: CHRONIC OBSTRUCTIVE PULMONARY DISEASE
     Dosage: 18 mcg
     Route: 055
  2. COMBIVENT [Suspect]
     Indication: WHEEZING
     Route: 055
     Dates: start: 2011
  3. COMBIVENT [Suspect]
     Indication: COUGH
  4. ADVAIR [Concomitant]
     Indication: COUGH
  5. ADVAIR [Concomitant]
     Indication: DYSPNOEA

REACTIONS (8)
  - Lung neoplasm malignant [Not Recovered/Not Resolved]
  - Anaemia [Recovered/Resolved]
  - Blood sodium decreased [Recovered/Resolved]
  - Platelet count decreased [Recovered/Resolved]
  - Blood magnesium decreased [Recovered/Resolved]
  - Blood potassium decreased [Recovered/Resolved]
  - Asthenia [Recovered/Resolved]
  - Incorrect route of drug administration [Recovered/Resolved]
